FAERS Safety Report 9990867 (Version 1)
Quarter: 2014Q1

REPORT INFORMATION
  Report Type: Report from Study
  Country: US (occurrence: US)
  Receive Date: 20140310
  Receipt Date: 20140310
  Transmission Date: 20141002
  Serious: No
  Sender: FDA-Public Use
  Company Number: US-ABBVIE-13P-163-1137707-00

PATIENT
  Sex: Female

DRUGS (2)
  1. HUMIRA [Suspect]
     Indication: RHEUMATOID ARTHRITIS
     Dates: start: 201110
  2. FLUOXETINE HYDROCHLORIDE [Concomitant]
     Indication: DEPRESSION
     Dosage: 3 MG DAILY

REACTIONS (2)
  - Arthritis [Not Recovered/Not Resolved]
  - Pain in extremity [Not Recovered/Not Resolved]
